FAERS Safety Report 5211653-2 (Version None)
Quarter: 2007Q1

REPORT INFORMATION
  Report Type: 
  Country: None (occurrence: None)
  Receive Date: 20070117
  Receipt Date: 20070117
  Transmission Date: 20070707
  Serious: Yes (Hospitalization, Other)
  Sender: FDA-Public Use
  Company Number: None

PATIENT
  Age: 11 Year
  Sex: Male
  Weight: 21.7727 kg

DRUGS (2)
  1. NIFURTIMOX [Suspect]
     Indication: NEUROBLASTOMA RECURRENT
     Dosage: 20MG/KG/DAY DIV TID PO
     Route: 048
     Dates: start: 20061103, end: 20061124
  2. VINCRISTINE [Suspect]
     Indication: NEUROBLASTOMA
     Dosage: 1.5MG/M2 ONCE IV BOLUS
     Route: 040
     Dates: start: 20061121, end: 20061121

REACTIONS (10)
  - AREFLEXIA [None]
  - ASTHENIA [None]
  - ENCEPHALOPATHY [None]
  - FUNGAL SEPSIS [None]
  - MALIGNANT NEOPLASM PROGRESSION [None]
  - MENTAL STATUS CHANGES [None]
  - NEUROBLASTOMA [None]
  - NEUTROPENIA [None]
  - PYREXIA [None]
  - SEDATION [None]
